FAERS Safety Report 19951929 (Version 1)
Quarter: 2021Q4

REPORT INFORMATION
  Report Type: Spontaneous
  Country: CN (occurrence: CN)
  Receive Date: 20211014
  Receipt Date: 20211014
  Transmission Date: 20220303
  Serious: No
  Sender: FDA-Public Use
  Company Number: CN-BLUEPRINT MEDICINES CORPORATION-SO-CN-2021-001856

PATIENT
  Age: 71 Year
  Sex: Male

DRUGS (1)
  1. AYVAKIT [Suspect]
     Active Substance: AVAPRITINIB
     Indication: Gastrointestinal stromal tumour
     Route: 048
     Dates: start: 20210512

REACTIONS (5)
  - Hair disorder [Unknown]
  - Swelling [Unknown]
  - Swelling face [Unknown]
  - Decreased appetite [Unknown]
  - White blood cell count decreased [Unknown]
